FAERS Safety Report 8407626-9 (Version None)
Quarter: 2012Q2

REPORT INFORMATION
  Report Type: 
  Country: None (occurrence: None)
  Receive Date: 20120604
  Receipt Date: 20120521
  Transmission Date: 20120825
  Serious: Yes (Hospitalization)
  Sender: FDA-Public Use
  Company Number: US-ASTRAZENECA-2012SE07511

PATIENT
  Age: 62 Year
  Sex: Female

DRUGS (1)
  1. NEXIUM [Suspect]
     Route: 048

REACTIONS (11)
  - MULTIPLE INJURIES [None]
  - DYSPHONIA [None]
  - GASTROOESOPHAGEAL REFLUX DISEASE [None]
  - INTENTIONAL DRUG MISUSE [None]
  - REGURGITATION [None]
  - GASTROOESOPHAGEAL SPHINCTER INSUFFICIENCY [None]
  - QUALITY OF LIFE DECREASED [None]
  - HAEMORRHAGE [None]
  - PAIN [None]
  - IMPAIRED WORK ABILITY [None]
  - OESOPHAGEAL HYPOMOTILITY [None]
